FAERS Safety Report 4294778-8 (Version None)
Quarter: 2004Q1

REPORT INFORMATION
  Report Type: 
  Country: None (occurrence: None)
  Receive Date: 20040213
  Receipt Date: 20030807
  Transmission Date: 20041129
  Serious: Yes (Death, Hospitalization)
  Sender: FDA-Public Use
  Company Number: WAES 0308GBR00053

PATIENT
  Age: 76 Year
  Sex: Male
  Weight: 75 kg

DRUGS (10)
  1. ACETAMINOPHEN AND DIHYDROCODEINE BITARTRATE [Concomitant]
     Route: 048
  2. BISMUTH SUBGALLATE AND PRAMOXINE HYDROCHLORIDE [Concomitant]
     Route: 054
  3. CELECOXIB [Concomitant]
     Dates: start: 20030430, end: 20030508
  4. DICLOFENAC SODIUM AND MISOPROSTOL [Concomitant]
     Route: 048
  5. FLUOXETINE [Concomitant]
     Route: 048
  6. IBUPROFEN [Concomitant]
     Route: 048
  7. LORAZEPAM [Concomitant]
     Route: 048
  8. PSYLLIUM HUSK [Concomitant]
  9. VIOXX [Suspect]
     Indication: LOCALISED OSTEOARTHRITIS
     Route: 048
     Dates: start: 20030508, end: 20030522
  10. ZOPICLONE [Concomitant]
     Route: 048

REACTIONS (10)
  - DIVERTICULITIS [None]
  - DUODENAL ULCER HAEMORRHAGE [None]
  - DYSTONIA [None]
  - GASTROINTESTINAL HAEMORRHAGE [None]
  - MELAENA [None]
  - PECTUS EXCAVATUM [None]
  - PEPTIC ULCER [None]
  - PNEUMONIA [None]
  - SPONDYLOSIS [None]
  - UPPER GASTROINTESTINAL HAEMORRHAGE [None]
